FAERS Safety Report 7461787-7 (Version None)
Quarter: 2011Q2

REPORT INFORMATION
  Report Type: 
  Country: None (occurrence: None)
  Receive Date: 20110506
  Receipt Date: 20110408
  Transmission Date: 20111010
  Serious: Yes (Hospitalization)
  Sender: FDA-Public Use
  Company Number: US-BAYER-2011-009422

PATIENT
  Age: 38 Year
  Sex: Female
  Weight: 104.31 kg

DRUGS (5)
  1. DROSPIRENONE AND ETHINYL ESTRADIOL [Suspect]
     Indication: PRODUCT USED FOR UNKNOWN INDICATION
     Dosage: UNK
     Route: 048
     Dates: start: 20081212, end: 20090122
  2. LEVAQUIN [Concomitant]
     Indication: SINUSITIS
     Dosage: UNK
     Dates: start: 20090116
  3. HYDROCHLOROTHIAZIDE [Concomitant]
     Dosage: 25 MG, UNK
  4. LISINOPRIL [Concomitant]
     Dosage: 10 MG, UNK
  5. FLAGYL [Concomitant]
     Dosage: 500 UNK, UNK
     Dates: start: 20090102

REACTIONS (4)
  - SCAR [None]
  - PAIN [None]
  - DEEP VEIN THROMBOSIS [None]
  - EMOTIONAL DISTRESS [None]
